FAERS Safety Report 6146605-1 (Version None)
Quarter: 2009Q2

REPORT INFORMATION
  Report Type: 
  Country: None (occurrence: None)
  Receive Date: 20090407
  Receipt Date: 20090403
  Transmission Date: 20091009
  Serious: Yes (Death)
  Sender: FDA-Public Use
  Company Number: FR-TEVA-190532ISR

PATIENT
  Age: 15 Year
  Sex: Female

DRUGS (3)
  1. ETOPOSIDE [Suspect]
     Indication: OVARIAN CANCER
     Dates: start: 20090313, end: 20090315
  2. IFOSFAMIDE [Concomitant]
     Indication: OVARIAN CANCER
     Dates: start: 20090313, end: 20090315
  3. CISPLATIN [Concomitant]
     Indication: OVARIAN CANCER
     Dates: start: 20090313, end: 20090315

REACTIONS (4)
  - BLOOD BILIRUBIN INCREASED [None]
  - DEATH [None]
  - HEPATITIS ACUTE [None]
  - TRANSAMINASES INCREASED [None]
